FAERS Safety Report 13922098 (Version 1)
Quarter: 2017Q3

REPORT INFORMATION
  Report Type: Spontaneous
  Country: US (occurrence: US)
  Receive Date: 20170830
  Receipt Date: 20170830
  Transmission Date: 20171127
  Serious: No
  Sender: FDA-Public Use
  Company Number: US-TARO-2017TAR00237

PATIENT
  Age: 79 Year
  Sex: Male
  Weight: 86.17 kg

DRUGS (6)
  1. UNSPECIFIED THYROID MEDICATION [Concomitant]
     Active Substance: UNSPECIFIED INGREDIENT
  2. WARFARIN SODIUM TABLETS USP 1MG [Suspect]
     Active Substance: WARFARIN SODIUM
     Dosage: 1 TABLETS, EVERY 48 HOURS
     Route: 048
     Dates: start: 201703
  3. ACETAMINOPHEN. [Concomitant]
     Active Substance: ACETAMINOPHEN
  4. VITAMIN D [Concomitant]
     Active Substance: CHOLECALCIFEROL
  5. WARFARIN SODIUM TABLETS USP 1MG [Suspect]
     Active Substance: WARFARIN SODIUM
     Dosage: 2 TABLETS, EVERY 48 HOURS
     Route: 048
     Dates: start: 201703
  6. WARFARIN SODIUM TABLETS USP 1MG [Suspect]
     Active Substance: WARFARIN SODIUM
     Indication: CEREBROVASCULAR ACCIDENT PROPHYLAXIS
     Dosage: 2-3 MG
     Route: 048
     Dates: start: 201703, end: 2017

REACTIONS (5)
  - Panic reaction [Recovered/Resolved]
  - Coagulation test abnormal [Recovered/Resolved]
  - Visual impairment [Unknown]
  - Disturbance in attention [Recovered/Resolved]
  - Vision blurred [Unknown]

NARRATIVE: CASE EVENT DATE: 20170404
